FAERS Safety Report 7559551-3 (Version None)
Quarter: 2011Q2

REPORT INFORMATION
  Report Type: 
  Country: None (occurrence: None)
  Receive Date: 20110617
  Receipt Date: 20110617
  Transmission Date: 20111010
  Serious: No
  Sender: FDA-Public Use
  Company Number: None

PATIENT
  Sex: Male
  Weight: 77.3 kg

DRUGS (1)
  1. COPAXONE [Suspect]
     Indication: MULTIPLE SCLEROSIS
     Dosage: 20MG DAILY SUBCUTANEOUSLY
     Route: 058
     Dates: start: 20100428

REACTIONS (4)
  - INJECTION SITE REACTION [None]
  - INJECTION SITE MASS [None]
  - INJECTION SITE SWELLING [None]
  - WEIGHT DECREASED [None]
